FAERS Safety Report 5400140-4 (Version None)
Quarter: 2007Q3

REPORT INFORMATION
  Report Type: 
  Country: None (occurrence: None)
  Receive Date: 20070730
  Receipt Date: 20070720
  Transmission Date: 20080115
  Serious: Yes (Hospitalization)
  Sender: FDA-Public Use
  Company Number: US-JNJFOC-20070704649

PATIENT
  Sex: Male

DRUGS (3)
  1. FENTANYL [Suspect]
     Indication: DRUG USE FOR UNKNOWN INDICATION
     Route: 062
  2. PERCOCET [Concomitant]
     Dosage: 5/325 TAKEN 3 OR 4 TIMES DAILY
     Route: 048
  3. EPIDURAL [Concomitant]
     Indication: BACK PAIN
     Dosage: PERIODIC
     Route: 050

REACTIONS (1)
  - HOSPITALISATION [None]
